FAERS Safety Report 25199503 (Version 2)
Quarter: 2025Q2

REPORT INFORMATION
  Report Type: Report from Study
  Country: US (occurrence: US)
  Receive Date: 20250415
  Receipt Date: 20250508
  Transmission Date: 20250717
  Serious: Yes (Hospitalization, Other)
  Sender: TAKEDA
  Company Number: US-SHIRE-US202026357

PATIENT
  Age: 65 Year
  Sex: Female
  Weight: 77 kg

DRUGS (39)
  1. HUMAN IMMUNOGLOBULIN G [Suspect]
     Active Substance: HUMAN IMMUNOGLOBULIN G
     Indication: Immune system disorder
     Dosage: 18 GRAM, Q2WEEKS
     Dates: start: 20191113
  2. HUMAN IMMUNOGLOBULIN G [Suspect]
     Active Substance: HUMAN IMMUNOGLOBULIN G
     Indication: Hypergammaglobulinaemia
     Dosage: 20 GRAM, Q2WEEKS
  3. HUMAN IMMUNOGLOBULIN G [Suspect]
     Active Substance: HUMAN IMMUNOGLOBULIN G
     Dosage: 22 GRAM, Q2WEEKS
  4. HUMAN IMMUNOGLOBULIN G [Suspect]
     Active Substance: HUMAN IMMUNOGLOBULIN G
     Dosage: 24 GRAM, Q2WEEKS
  5. INFLUENZA VIRUS VACCINE [Suspect]
     Active Substance: INFLUENZA VIRUS VACCINE
     Indication: Product used for unknown indication
  6. ASPIRIN [Concomitant]
     Active Substance: ASPIRIN
  7. VITAMIN D3 [Concomitant]
     Active Substance: CHOLECALCIFEROL
  8. OMEPRAZOLE [Concomitant]
     Active Substance: OMEPRAZOLE
  9. CRESTOR [Concomitant]
     Active Substance: ROSUVASTATIN CALCIUM
  10. LEVOTHYROXINE SODIUM [Concomitant]
     Active Substance: LEVOTHYROXINE SODIUM
  11. ISOSORBIDE DINITRATE [Concomitant]
     Active Substance: ISOSORBIDE DINITRATE
  12. AMLODIPINE BESYLATE [Concomitant]
     Active Substance: AMLODIPINE BESYLATE
  13. ZINC GLUCONATE [Concomitant]
     Active Substance: ZINC GLUCONATE
  14. SINGULAIR [Concomitant]
     Active Substance: MONTELUKAST SODIUM
  15. AZELASTINE HYDROCHLORIDE [Concomitant]
     Active Substance: AZELASTINE HYDROCHLORIDE
  16. LOSARTAN POTASSIUM [Concomitant]
     Active Substance: LOSARTAN POTASSIUM
  17. FAMOTIDINE [Concomitant]
     Active Substance: FAMOTIDINE
  18. ROSUVASTATIN CALCIUM [Concomitant]
     Active Substance: ROSUVASTATIN CALCIUM
  19. MIRALAX [Concomitant]
     Active Substance: POLYETHYLENE GLYCOL 3350
  20. DIPHENHYDRAMINE [Concomitant]
     Active Substance: DIPHENHYDRAMINE
  21. SIMVASTATIN [Concomitant]
     Active Substance: SIMVASTATIN
  22. POTASSIUM [Concomitant]
     Active Substance: POTASSIUM
  23. CALCIUM [Concomitant]
     Active Substance: CALCIUM
  24. EPINEPHRINE [Concomitant]
     Active Substance: EPINEPHRINE
  25. RHINOCORT ALLERGY [Concomitant]
     Active Substance: BUDESONIDE
  26. ACETAMINOPHEN [Concomitant]
     Active Substance: ACETAMINOPHEN
  27. SYNTHROID [Concomitant]
     Active Substance: LEVOTHYROXINE SODIUM
  28. LORAZEPAM [Concomitant]
     Active Substance: LORAZEPAM
  29. AUGMENTIN [Concomitant]
     Active Substance: AMOXICILLIN\CLAVULANATE POTASSIUM
  30. VITAMIN B12 [Concomitant]
     Active Substance: CYANOCOBALAMIN
  31. Lmx [Concomitant]
  32. DOXYCYCLINE HYCLATE [Concomitant]
     Active Substance: DOXYCYCLINE HYCLATE
  33. METHYLPREDNISOLONE [Concomitant]
     Active Substance: METHYLPREDNISOLONE
  34. DIPHENHYDRAMINE HYDROCHLORIDE [Concomitant]
     Active Substance: DIPHENHYDRAMINE HYDROCHLORIDE
  35. CETIRIZINE HYDROCHLORIDE [Concomitant]
     Active Substance: CETIRIZINE HYDROCHLORIDE
  36. MONTELUKAST SODIUM [Concomitant]
     Active Substance: MONTELUKAST SODIUM
  37. HYDROCHLOROTHIAZIDE [Concomitant]
     Active Substance: HYDROCHLOROTHIAZIDE
  38. DULOXETINE HYDROCHLORIDE [Concomitant]
     Active Substance: DULOXETINE HYDROCHLORIDE
  39. AZELASTINE [Concomitant]
     Active Substance: AZELASTINE

REACTIONS (58)
  - Pneumonia [Unknown]
  - Pneumothorax [Unknown]
  - Dehydration [Unknown]
  - Sinus disorder [Unknown]
  - Lower respiratory tract infection [Unknown]
  - Coeliac disease [Unknown]
  - Gastric ulcer [Unknown]
  - Deafness [Unknown]
  - Influenza [Unknown]
  - Nasopharyngitis [Unknown]
  - Musculoskeletal discomfort [Unknown]
  - Back disorder [Unknown]
  - Bronchitis [Recovered/Resolved]
  - Eye disorder [Unknown]
  - Myocardial calcification [Unknown]
  - Rash macular [Unknown]
  - Thyroid disorder [Unknown]
  - Complication associated with device [Unknown]
  - COVID-19 [Unknown]
  - Urinary tract infection [Unknown]
  - Pharyngitis streptococcal [Unknown]
  - Candida infection [Unknown]
  - Body height decreased [Unknown]
  - Memory impairment [Unknown]
  - Infection [Unknown]
  - Weight decreased [Unknown]
  - Rash pruritic [Unknown]
  - Respiratory tract infection [Unknown]
  - Hypoacusis [Unknown]
  - Cardiac murmur [Unknown]
  - Fibromyalgia [Unknown]
  - Lung disorder [Unknown]
  - Depression [Unknown]
  - Obstruction [Unknown]
  - Device use issue [Unknown]
  - Infusion site discharge [Unknown]
  - Frequent bowel movements [Unknown]
  - Inappropriate schedule of product administration [Unknown]
  - Illness [Unknown]
  - Increased tendency to bruise [Unknown]
  - Arterial occlusive disease [Unknown]
  - Upper respiratory tract infection [Unknown]
  - Sinusitis [Recovering/Resolving]
  - Infusion site haemorrhage [Unknown]
  - Infusion site nodule [Unknown]
  - Conjunctivitis [Unknown]
  - Muscle spasms [Unknown]
  - Rash erythematous [Unknown]
  - Malaise [Unknown]
  - Hyperhidrosis [Unknown]
  - Abdominal pain upper [Unknown]
  - Injection site pain [Unknown]
  - Pain [Unknown]
  - Infusion site pain [Unknown]
  - Back pain [Unknown]
  - Abdominal pain [Unknown]
  - Pruritus [Unknown]
  - Fatigue [Unknown]

NARRATIVE: CASE EVENT DATE: 20201103
